FAERS Safety Report 5868544-3 (Version None)
Quarter: 2008Q3

REPORT INFORMATION
  Report Type: 
  Country: None (occurrence: None)
  Receive Date: 20080903
  Receipt Date: 20080826
  Transmission Date: 20090109
  Serious: Yes (Death)
  Sender: FDA-Public Use
  Company Number: US-CELGENEUS-163-21880-08021144

PATIENT
  Sex: Female

DRUGS (2)
  1. REVLIMID [Suspect]
     Indication: LEUKAEMIA
     Route: 048
     Dates: start: 20071029, end: 20071101
  2. REVLIMID [Suspect]
     Route: 048
     Dates: start: 20070906, end: 20071001

REACTIONS (1)
  - DEATH [None]
